FAERS Safety Report 7564837-2 (Version None)
Quarter: 2011Q2

REPORT INFORMATION
  Report Type: 
  Country: None (occurrence: None)
  Receive Date: 20110622
  Receipt Date: 20110207
  Transmission Date: 20111010
  Serious: Yes (Other)
  Sender: FDA-Public Use
  Company Number: US-MYLANLABS-2011S1000022

PATIENT
  Age: 57 Year
  Sex: Female

DRUGS (12)
  1. OCULAR LUBRICANT /01768801/ [Concomitant]
  2. APAP TAB [Concomitant]
  3. CLOZAPINE [Suspect]
     Indication: ABNORMAL BEHAVIOUR
     Dates: start: 20070701, end: 20110106
  4. TRIHEXYPHENIDYL HCL [Concomitant]
  5. CLOZAPINE [Suspect]
     Dates: start: 20070701, end: 20110106
  6. ACTOS [Concomitant]
  7. GLIMEPIRIDE [Concomitant]
  8. SIMVASTATIN [Concomitant]
  9. CLOZAPINE [Suspect]
     Dates: start: 20070701, end: 20110106
  10. CLOZAPINE [Suspect]
     Indication: SCHIZOPHRENIA
     Dates: start: 20070701, end: 20110106
  11. ASPIRIN [Concomitant]
  12. M.V.I. [Concomitant]

REACTIONS (2)
  - GRANULOCYTOPENIA [None]
  - WHITE BLOOD CELL COUNT DECREASED [None]
